FAERS Safety Report 14640319 (Version 1)
Quarter: 2018Q1

REPORT INFORMATION
  Report Type: Spontaneous
  Country: US (occurrence: US)
  Receive Date: 20180315
  Receipt Date: 20180315
  Transmission Date: 20180509
  Serious: No
  Sender: FDA-Public Use
  Company Number: US-VIIV HEALTHCARE LIMITED-US2018GSK043637

PATIENT
  Sex: Male

DRUGS (1)
  1. COMBIVIR [Suspect]
     Active Substance: LAMIVUDINE\ZIDOVUDINE
     Indication: HIV INFECTION

REACTIONS (3)
  - Intentional underdose [Unknown]
  - Drug dose omission [Unknown]
  - Intentional product misuse [Unknown]
